FAERS Safety Report 15704183 (Version 1)
Quarter: 2018Q4

REPORT INFORMATION
  Report Type: Spontaneous
  Country: CH (occurrence: CH)
  Receive Date: 20181210
  Receipt Date: 20181210
  Transmission Date: 20190205
  Serious: Yes (Life-Threatening, Hospitalization, Other)
  Sender: FDA-Public Use
  Company Number: CH-PFIZER INC-2018503781

PATIENT
  Age: 66 Year
  Sex: Female

DRUGS (6)
  1. NORADRENALINE [NOREPINEPHRINE] [Suspect]
     Active Substance: NOREPINEPHRINE
     Dosage: 150 UG, UNK
     Dates: start: 20181106, end: 20181106
  2. TAZOBAC [Suspect]
     Active Substance: PIPERACILLIN SODIUM\TAZOBACTAM SODIUM
     Indication: PYELONEPHRITIS
     Dosage: 4.5 G, 2X/DAY (4.5 G EVERY 12 HOURS/ 2X4.5G /24 H)
     Route: 042
     Dates: start: 20181103, end: 20181105
  3. RINGER LACTATE B. BRAUN [Concomitant]
     Dosage: 3000 ML, DAILY (3000ML/24 H)
     Route: 042
     Dates: start: 20181105, end: 20181105
  4. HEPARIN [Concomitant]
     Active Substance: HEPARIN SODIUM
     Dosage: 10000 IU, DAILY (10000 IU/24 H)
     Route: 042
     Dates: start: 20181105
  5. FENTANYL. [Concomitant]
     Active Substance: FENTANYL
     Dosage: AS BOLUS (DOSE UNCLEAR)
     Route: 042
     Dates: start: 20181105
  6. NORADRENALINE [NOREPINEPHRINE] [Suspect]
     Active Substance: NOREPINEPHRINE
     Dosage: 400 UG, UNK
     Dates: start: 20181105, end: 20181105

REACTIONS (5)
  - Septic shock [Unknown]
  - Coagulopathy [Unknown]
  - Haemodynamic instability [Unknown]
  - Multiple organ dysfunction syndrome [Unknown]
  - Renal failure [Not Recovered/Not Resolved]

NARRATIVE: CASE EVENT DATE: 20181105
